FAERS Safety Report 4848700-3 (Version None)
Quarter: 2005Q4

REPORT INFORMATION
  Report Type: 
  Country: None (occurrence: None)
  Receive Date: 20051206
  Receipt Date: 20051118
  Transmission Date: 20060501
  Serious: Yes (Death, Other)
  Sender: FDA-Public Use
  Company Number: JP200511002078

PATIENT
  Age: 60 Year
  Sex: Male
  Weight: 61.6 kg

DRUGS (5)
  1. GEMZAR [Suspect]
     Indication: PANCREATIC CARCINOMA STAGE IV
     Dosage: 1000 MG, OTHER, INTRAVENOUS
     Route: 042
  2. PENTAZOCINE LACTATE [Concomitant]
  3. NSAID'S [Concomitant]
  4. OXYCODONE (OXYCODONE) [Concomitant]
  5. MORPHINE [Concomitant]

REACTIONS (14)
  - ANAEMIA [None]
  - DYSPNOEA [None]
  - GASTRITIS [None]
  - GASTROINTESTINAL HAEMORRHAGE [None]
  - HAEMOPTYSIS [None]
  - ILEUS PARALYTIC [None]
  - MALIGNANT ASCITES [None]
  - MALIGNANT PLEURAL EFFUSION [None]
  - METASTASES TO LYMPH NODES [None]
  - NAUSEA [None]
  - OESOPHAGEAL ULCER HAEMORRHAGE [None]
  - SHOCK HAEMORRHAGIC [None]
  - SUBILEUS [None]
  - VOMITING [None]
